FAERS Safety Report 10063477 (Version 1)
Quarter: 2014Q1

REPORT INFORMATION
  Report Type: Spontaneous
  Country: US (occurrence: None)
  Receive Date: 20140327
  Receipt Date: 20140327
  Transmission Date: 20141002
  Serious: Yes (Other)
  Sender: FDA-Public Use
  Company Number: GR 13-012

PATIENT
  Age: 42 Year
  Sex: Female

DRUGS (11)
  1. BERMUDA GRASS (CYNODON DACTYLON) 30 ML [Suspect]
     Indication: HYPERSENSITIVITY
  2. K-O-R-T GRASS MIX [Suspect]
  3. CELEXA [Concomitant]
  4. DELTASONE [Concomitant]
  5. EPIPEN [Concomitant]
  6. VALTREX [Concomitant]
  7. PROTONIX [Concomitant]
  8. TYLENOL (ACETAMINOPHEN) [Concomitant]
  9. MOTRIN [Concomitant]
  10. VITAMIN C (ASCORBIC ACID) [Concomitant]
  11. FLONASE NASAL SPRAY [Concomitant]

REACTIONS (4)
  - Paraesthesia oral [None]
  - Rash [None]
  - Skin burning sensation [None]
  - Generalised erythema [None]
